FAERS Safety Report 5384173-2 (Version None)
Quarter: 2007Q3

REPORT INFORMATION
  Report Type: 
  Country: None (occurrence: None)
  Receive Date: 20070711
  Receipt Date: 20070703
  Transmission Date: 20080115
  Serious: Yes (Other)
  Sender: FDA-Public Use
  Company Number: A0640326A

PATIENT
  Age: 75 Year
  Sex: Male

DRUGS (13)
  1. COREG [Suspect]
     Indication: CARDIAC FAILURE
     Dosage: 25MG TWICE PER DAY
     Route: 048
     Dates: start: 20050101
  2. WARFARIN SODIUM [Concomitant]
  3. COUMADIN [Concomitant]
  4. LOTREL [Concomitant]
  5. DIGITEK [Concomitant]
  6. UNSPECIFIED MEDICATION [Concomitant]
  7. LIPITOR [Concomitant]
  8. CLARITIN [Concomitant]
  9. MULTI-VITAMIN [Concomitant]
  10. TYLENOL [Concomitant]
  11. LISINOPRIL [Concomitant]
  12. LANOXIN [Concomitant]
  13. FUROSEMIDE [Concomitant]

REACTIONS (21)
  - ACTIVITIES OF DAILY LIVING IMPAIRED [None]
  - AMNESIA [None]
  - ANXIETY [None]
  - BLOOD PRESSURE FLUCTUATION [None]
  - CEREBROVASCULAR ACCIDENT [None]
  - DISTURBANCE IN ATTENTION [None]
  - DIZZINESS [None]
  - FALL [None]
  - FATIGUE [None]
  - HEAD DISCOMFORT [None]
  - HEAD INJURY [None]
  - ISCHAEMIA [None]
  - MALAISE [None]
  - NAUSEA [None]
  - OEDEMA PERIPHERAL [None]
  - PALPITATIONS [None]
  - PARAESTHESIA [None]
  - PRURITUS [None]
  - RASH [None]
  - SPEECH DISORDER [None]
  - SYNCOPE [None]
